FAERS Safety Report 5558588-3 (Version None)
Quarter: 2007Q4

REPORT INFORMATION
  Report Type: 
  Country: None (occurrence: None)
  Receive Date: 20071214
  Receipt Date: 20070904
  Transmission Date: 20080405
  Serious: No
  Sender: FDA-Public Use
  Company Number: US-ABBOTT-07P-163-0416196-00

PATIENT
  Sex: Female
  Weight: 57.204 kg

DRUGS (5)
  1. HUMIRA [Suspect]
     Indication: CROHN'S DISEASE
     Route: 058
     Dates: start: 20070701
  2. HUMIRA [Suspect]
  3. HUMIRA [Suspect]
  4. HYDROCORTISONE [Concomitant]
     Indication: DRUG USE FOR UNKNOWN INDICATION
     Dates: start: 20070101
  5. FISH OIL [Concomitant]
     Indication: DRUG USE FOR UNKNOWN INDICATION

REACTIONS (8)
  - ACCIDENTAL EXPOSURE [None]
  - ANOREXIA [None]
  - DRUG INEFFECTIVE [None]
  - EXCORIATION [None]
  - FATIGUE [None]
  - INJECTION SITE PAIN [None]
  - JOINT SWELLING [None]
  - RASH [None]
